FAERS Safety Report 9809169 (Version 2)
Quarter: 2014Q1

REPORT INFORMATION
  Report Type: Spontaneous
  Country: TW (occurrence: TW)
  Receive Date: 20140110
  Receipt Date: 20140110
  Transmission Date: 20141002
  Serious: Yes (Other)
  Sender: FDA-Public Use
  Company Number: TW-ABBVIE-12P-153-0955232-00

PATIENT
  Age: 35 Year
  Sex: Male

DRUGS (7)
  1. HUMIRA 40 MG/ 0.8 ML PRE-FILLED SYRINGE [Suspect]
     Indication: PSORIASIS
     Route: 058
     Dates: start: 20120416, end: 20120611
  2. ENBREL [Suspect]
     Indication: PSORIASIS
     Route: 058
     Dates: start: 201106, end: 201109
  3. ENBREL [Suspect]
     Route: 058
     Dates: start: 201109, end: 201202
  4. CORT-S [Concomitant]
     Indication: PSORIASIS
     Dosage: 1% 50G/BOX; TWICE A DAY
     Route: 061
     Dates: start: 20111216
  5. DAIVOBET [Concomitant]
     Indication: PSORIASIS
     Dosage: OINT; 30G/TUBE EVERY DAY
     Route: 061
  6. DERMOVATE [Concomitant]
     Indication: PSORIASIS
     Dosage: 0.05% 5G/TUBE; TWICE A DAY
  7. ELOMET [Concomitant]
     Indication: PSORIASIS
     Dosage: CREAM; 0.1% 5G; EVERY DAY
     Route: 061

REACTIONS (2)
  - Retinal vein occlusion [Recovered/Resolved with Sequelae]
  - Glaucoma [Unknown]
